FAERS Safety Report 9133105 (Version 1)
Quarter: 2013Q1

REPORT INFORMATION
  Report Type: Report from Study
  Country: IT (occurrence: IT)
  Receive Date: 20130301
  Receipt Date: 20130301
  Transmission Date: 20140127
  Serious: Yes (Other)
  Sender: FDA-Public Use
  Company Number: IT-ROCHE-1141150

PATIENT
  Age: 76 Year
  Sex: Female

DRUGS (4)
  1. VEMURAFENIB [Suspect]
     Indication: METASTATIC MALIGNANT MELANOMA
     Route: 048
     Dates: start: 20120808, end: 20130110
  2. VEMURAFENIB [Suspect]
     Route: 048
     Dates: start: 20130121
  3. LASIX [Concomitant]
     Indication: HYPERTENSION
     Dosage: 1 VIAL
     Route: 042
     Dates: start: 20120924, end: 20120924
  4. LASIX [Concomitant]
     Dosage: 1 VIAL
     Route: 042
     Dates: start: 20120926, end: 20120926

REACTIONS (9)
  - Metastatic malignant melanoma [Unknown]
  - Hyperkeratosis [Not Recovered/Not Resolved]
  - Blood urea increased [Not Recovered/Not Resolved]
  - Blood creatinine increased [Not Recovered/Not Resolved]
  - Asthenia [Recovered/Resolved]
  - Hypertension [Not Recovered/Not Resolved]
  - Palmar-plantar erythrodysaesthesia syndrome [Not Recovered/Not Resolved]
  - Blood creatinine increased [Not Recovered/Not Resolved]
  - Blood urea increased [Not Recovered/Not Resolved]
